FAERS Safety Report 22083692 (Version 1)
Quarter: 2023Q1

REPORT INFORMATION
  Report Type: Spontaneous
  Country: CN (occurrence: CN)
  Receive Date: 20230310
  Receipt Date: 20230310
  Transmission Date: 20230417
  Serious: Yes (Other)
  Sender: FDA-Public Use
  Company Number: CN-PFIZER INC-PV202300045539

PATIENT
  Age: 8 Year
  Sex: Female
  Weight: 23.5 kg

DRUGS (6)
  1. AZITHROMYCIN [Suspect]
     Active Substance: AZITHROMYCIN
     Indication: Mycoplasma infection
     Dosage: 0.23 G, 1X/DAY
     Route: 041
     Dates: start: 20230221
  2. DEXTROSE [Concomitant]
     Active Substance: DEXTROSE
     Indication: Vehicle solution use
     Dosage: 250 ML, 1X/DAY
     Route: 041
     Dates: start: 20230221, end: 20230225
  3. MEILIN [Concomitant]
     Dosage: UNK
     Dates: start: 20230213, end: 20230215
  4. AZITHROMYCIN [Concomitant]
     Active Substance: AZITHROMYCIN
     Dosage: UNK
     Dates: start: 20230213, end: 20230215
  5. HERBALS [Concomitant]
     Active Substance: HERBALS
     Dosage: UNK
     Route: 030
     Dates: start: 202302, end: 202302
  6. OSELTAMIVIR [Concomitant]
     Active Substance: OSELTAMIVIR
     Dosage: UNK
     Dates: start: 202302, end: 202302

REACTIONS (5)
  - Dizziness [Recovering/Resolving]
  - Palpitations [Recovering/Resolving]
  - Sinus tachycardia [Recovering/Resolving]
  - Hypotension [Recovering/Resolving]
  - Off label use [Unknown]

NARRATIVE: CASE EVENT DATE: 20230221
